FAERS Safety Report 8056448-X (Version None)
Quarter: 2012Q1

REPORT INFORMATION
  Report Type: 
  Country: None (occurrence: None)
  Receive Date: 20120119
  Receipt Date: 20120109
  Transmission Date: 20120608
  Serious: Yes (Other)
  Sender: FDA-Public Use
  Company Number: US-MERCK-1110USA00182

PATIENT
  Age: 73 Year
  Sex: Female

DRUGS (2)
  1. FOSAMAX [Suspect]
     Indication: OSTEOPOROSIS
     Route: 048
     Dates: start: 20060101, end: 20090101
  2. ALENDRONATE SODIUM [Suspect]
     Route: 065

REACTIONS (20)
  - HYPERTENSION [None]
  - ARTHROPATHY [None]
  - RADICULOPATHY [None]
  - BRONCHITIS [None]
  - DIABETES MELLITUS INADEQUATE CONTROL [None]
  - ANGINA PECTORIS [None]
  - ARTHRITIS [None]
  - TOOTH DISORDER [None]
  - OSTEONECROSIS OF JAW [None]
  - HAEMORRHOIDS [None]
  - GINGIVAL RECESSION [None]
  - GASTROOESOPHAGEAL REFLUX DISEASE [None]
  - INTERVERTEBRAL DISC DEGENERATION [None]
  - HYPERLIPIDAEMIA [None]
  - DENTAL CARIES [None]
  - GALLBLADDER DISORDER [None]
  - OSTEOARTHRITIS [None]
  - UTERINE DISORDER [None]
  - ROAD TRAFFIC ACCIDENT [None]
  - HYPOTHYROIDISM [None]
